APPROVED DRUG PRODUCT: POLY-RX
Active Ingredient: POLYMYXIN B SULFATE
Strength: 100,000,000 UNITS/BOT
Dosage Form/Route: POWDER;FOR RX COMPOUNDING
Application: A061578 | Product #001
Applicant: X GEN PHARMACEUTICALS INC
Approved: Approved Prior to Jan 1, 1982 | RLD: No | RS: No | Type: DISCN